FAERS Safety Report 11979955 (Version 1)
Quarter: 2016Q1

REPORT INFORMATION
  Report Type: Report from Study
  Country: BE (occurrence: BE)
  Receive Date: 20160129
  Receipt Date: 20160129
  Transmission Date: 20160526
  Serious: Yes (Hospitalization)
  Sender: FDA-Public Use
  Company Number: BE-TAKEDA-2015MPI004385

PATIENT
  Age: 69 Year
  Sex: Female
  Weight: 79.9 kg

DRUGS (3)
  1. ZOVIRAX [Concomitant]
     Active Substance: ACYCLOVIR
     Dosage: 800 MG, QD
     Dates: start: 20150605
  2. ATACAND COMB [Concomitant]
     Active Substance: CANDESARTAN CILEXETIL\FELODIPINE
     Dosage: 3 MG, QD
     Dates: start: 2012
  3. IXAZOMIB [Suspect]
     Active Substance: IXAZOMIB
     Indication: B-CELL LYMPHOMA
     Dosage: 5.3 MG, UNK
     Route: 048
     Dates: start: 20150605, end: 20150619

REACTIONS (1)
  - Asthenia [Recovered/Resolved]

NARRATIVE: CASE EVENT DATE: 20150625
